FAERS Safety Report 20475116 (Version 1)
Quarter: 2022Q1

REPORT INFORMATION
  Report Type: Spontaneous
  Country: US (occurrence: US)
  Receive Date: 20220215
  Receipt Date: 20220215
  Transmission Date: 20220424
  Serious: No
  Sender: FDA-Public Use
  Company Number: US-PFIZER INC-202101618024

PATIENT
  Age: 69 Year
  Sex: Female
  Weight: 113.38 kg

DRUGS (9)
  1. XELJANZ [Suspect]
     Active Substance: TOFACITINIB CITRATE
     Indication: Rheumatoid arthritis
     Dosage: 5 MG, 2X/DAY (TWICE DAILY)
     Route: 048
     Dates: start: 201406, end: 202109
  2. IRBESARTAN [Concomitant]
     Active Substance: IRBESARTAN
     Dosage: 150 MG
  3. NIFEDIPINE [Concomitant]
     Active Substance: NIFEDIPINE
     Dosage: 10 MG
  4. MINOCYCLINE [Concomitant]
     Active Substance: MINOCYCLINE HYDROCHLORIDE
     Dosage: 135 MG (135 MG CAP ER 24H)
  5. PANTOPRAZOLE SODIUM [Concomitant]
     Active Substance: PANTOPRAZOLE SODIUM
     Dosage: 20 MG
  6. TIZANIDINE HYDROCHLORIDE [Concomitant]
     Active Substance: TIZANIDINE HYDROCHLORIDE
     Dosage: 2 MG
  7. CALCIUM CARBONATE\VITAMIN D [Concomitant]
     Active Substance: CALCIUM CARBONATE\VITAMIN D
     Dosage: UNK (CALCIUM 600 MG-VIT D3 5 MCG)
  8. ETODOLAC [Concomitant]
     Active Substance: ETODOLAC
     Dosage: 400 MG
  9. GABAPENTIN [Concomitant]
     Active Substance: GABAPENTIN
     Dosage: 300 MG

REACTIONS (2)
  - COVID-19 [Unknown]
  - Pain [Unknown]

NARRATIVE: CASE EVENT DATE: 20210901
